FAERS Safety Report 5175881-7 (Version None)
Quarter: 2006Q4

REPORT INFORMATION
  Report Type: 
  Country: None (occurrence: None)
  Receive Date: 20061215
  Receipt Date: 20061213
  Transmission Date: 20070319
  Serious: Yes (Hospitalization, Disabling, Other)
  Sender: FDA-Public Use
  Company Number: US-GLAXOSMITHKLINE-A0631441A

PATIENT

DRUGS (2)
  1. COREG [Suspect]
     Indication: DRUG USE FOR UNKNOWN INDICATION
     Route: 048
  2. UNKNOWN [Concomitant]

REACTIONS (2)
  - DYSPNOEA [None]
  - WHEEZING [None]
